FAERS Safety Report 15393282 (Version 1)
Quarter: 2018Q3

REPORT INFORMATION
  Report Type: Other
  Country: US (occurrence: US)
  Receive Date: 20180917
  Receipt Date: 20180917
  Transmission Date: 20181010
  Serious: Yes (Hospitalization)
  Sender: FDA-Public Use
  Company Number: US-LEADIANT BIOSCIENCES INC-2017STPI000614

PATIENT
  Age: 6 Year
  Sex: Male

DRUGS (12)
  1. MATULANE [Suspect]
     Active Substance: PROCARBAZINE HYDROCHLORIDE
     Indication: MALIGNANT NEOPLASM OF SPINAL CORD
     Dosage: 50 MG, TID
     Route: 048
     Dates: start: 20161223
  2. BACTRIM [Concomitant]
     Active Substance: SULFAMETHOXAZOLE\TRIMETHOPRIM
     Indication: PRODUCT USED FOR UNKNOWN INDICATION
  3. MULTIVITAMIN                       /00097801/ [Concomitant]
     Active Substance: VITAMINS
     Indication: PRODUCT USED FOR UNKNOWN INDICATION
  4. ZOFRAN [Concomitant]
     Active Substance: ONDANSETRON HYDROCHLORIDE
     Indication: PRODUCT USED FOR UNKNOWN INDICATION
  5. COLACE [Concomitant]
     Active Substance: DOCUSATE SODIUM
     Indication: PRODUCT USED FOR UNKNOWN INDICATION
  6. DUOCAL [Concomitant]
     Indication: PRODUCT USED FOR UNKNOWN INDICATION
  7. MIRALAX [Concomitant]
     Active Substance: POLYETHYLENE GLYCOL 3350
  8. THIOGUANINE [Concomitant]
     Active Substance: THIOGUANINE
     Indication: PRODUCT USED FOR UNKNOWN INDICATION
  9. LOMUSTINE. [Concomitant]
     Active Substance: LOMUSTINE
     Indication: PRODUCT USED FOR UNKNOWN INDICATION
  10. ATIVAN [Concomitant]
     Active Substance: LORAZEPAM
     Indication: PRODUCT USED FOR UNKNOWN INDICATION
  11. LEXAPRO [Concomitant]
     Active Substance: ESCITALOPRAM OXALATE
     Indication: PRODUCT USED FOR UNKNOWN INDICATION
  12. SENNA                              /00571901/ [Concomitant]
     Active Substance: SENNOSIDES A AND B
     Indication: PRODUCT USED FOR UNKNOWN INDICATION

REACTIONS (2)
  - White blood cell count decreased [Not Recovered/Not Resolved]
  - Platelet count decreased [Not Recovered/Not Resolved]

NARRATIVE: CASE EVENT DATE: 201708
